FAERS Safety Report 19180525 (Version 3)
Quarter: 2021Q2

REPORT INFORMATION
  Report Type: Report from Study
  Country: US (occurrence: US)
  Receive Date: 20210426
  Receipt Date: 20210511
  Transmission Date: 20210717
  Serious: Yes (Hospitalization)
  Sender: FDA-Public Use
  Company Number: US-PFIZER INC-2021406359

PATIENT
  Age: 47 Year
  Sex: Male
  Weight: 78.8 kg

DRUGS (23)
  1. PREDNISONE. [Suspect]
     Active Substance: PREDNISONE
     Indication: B-CELL TYPE ACUTE LEUKAEMIA
     Dosage: 60 MG/M2, CYCLIC(BID, DAYS 1?5 Q28)
     Route: 048
     Dates: start: 20210330, end: 20210403
  2. ZESTRIL [Suspect]
     Active Substance: LISINOPRIL
     Indication: HYPERTENSION
     Dosage: 20 MG, DAILY
     Route: 048
     Dates: start: 20180502, end: 20210412
  3. MAGNESIUM OXIDE. [Concomitant]
     Active Substance: MAGNESIUM OXIDE
     Indication: MUSCLE SPASMS
     Dosage: 400 MG (1 TABLET), AS NEEDED
     Route: 048
  4. CYCLOPHOSPHAMIDE. [Suspect]
     Active Substance: CYCLOPHOSPHAMIDE
     Indication: B-CELL TYPE ACUTE LEUKAEMIA
     Dosage: 750 MG/M2, CYCLIC(DAY 5 Q28 DAYS)
     Route: 042
     Dates: start: 20210403, end: 20210403
  5. PEPCID [Concomitant]
     Active Substance: FAMOTIDINE
     Dosage: 20 MG, 2X/DAY
     Route: 048
  6. DIFLUCAN [Concomitant]
     Active Substance: FLUCONAZOLE
     Dosage: 200 MG, DAILY
     Route: 048
  7. HYDROCORTISONE. [Concomitant]
     Active Substance: HYDROCORTISONE
     Indication: MUCOSAL INFLAMMATION
     Dosage: APPLY TO RECTAL AREA 3 TIMES A DAY AS NEEDED
  8. LEVAQUIN [Concomitant]
     Active Substance: LEVOFLOXACIN
     Dosage: 750 MG, DAILY
     Route: 048
  9. POTASSIUM CHLORIDE. [Concomitant]
     Active Substance: POTASSIUM CHLORIDE
     Dosage: 20 MEQ, DAILY
     Route: 048
  10. COMPAZINE [Concomitant]
     Active Substance: PROCHLORPERAZINE MALEATE
     Dosage: 10 MG, EVERY 6 HOURS PRN
     Route: 048
  11. URSODIOL. [Concomitant]
     Active Substance: URSODIOL
     Dosage: 6 MG/KG, 2 TIMES DAILY, TAKE WITH FOOD.
     Route: 048
  12. ETOPOSIDE. [Suspect]
     Active Substance: ETOPOSIDE
     Indication: B-CELL TYPE ACUTE LEUKAEMIA
     Dosage: 50 MG/M2, CYCLIC( DAYS 1?4 Q28 DAYS)
     Route: 042
     Dates: start: 20210330, end: 20210402
  13. COREG [Suspect]
     Active Substance: CARVEDILOL
     Indication: HYPERTENSION
     Dosage: 12.5 MG, 2X/DAY
     Route: 048
     Dates: start: 20180605, end: 20210412
  14. INOTUZUMAB OZOGAMICIN [Suspect]
     Active Substance: INOTUZUMAB OZOGAMICIN
     Indication: B-CELL TYPE ACUTE LEUKAEMIA
     Dosage: 0.6 MG, DAY8 AND DAY 15 Q28 DAYS
     Route: 042
     Dates: start: 20210406
  15. VINCRISTINE SULFATE. [Suspect]
     Active Substance: VINCRISTINE SULFATE
     Indication: B-CELL TYPE ACUTE LEUKAEMIA
     Dosage: 0.4 MG/M2/DAY, CYCLIC(DAYS 1?4 Q28 DAYS)
     Route: 042
     Dates: start: 20210330, end: 20210402
  16. DOXORUBICIN HCL [Suspect]
     Active Substance: DOXORUBICIN HYDROCHLORIDE
     Indication: B-CELL TYPE ACUTE LEUKAEMIA
     Dosage: 10 MG/M2, CYCLIC: (DAYS 1?4 Q28 DAYS)
     Route: 042
     Dates: start: 20210330, end: 20210402
  17. ZOFRAN [Concomitant]
     Active Substance: ONDANSETRON HYDROCHLORIDE
     Dosage: 8 MG, EVERY 8 HOURS PRN
     Route: 048
  18. ROSUVASTATIN. [Concomitant]
     Active Substance: ROSUVASTATIN
     Dosage: 1 DF, QD
     Route: 048
  19. SULFAMETHOXAZOLE/TRIMETHOPRIM [Concomitant]
     Active Substance: SULFAMETHOXAZOLE\TRIMETHOPRIM
     Dosage: 1 TABLET, TWICE DAILY ON MON AND TUES, DO NOT TAKE FIRST DOSE UNTIL DIRECTED BY CLINICAL TEAM
     Route: 048
  20. OMEGA?3 FATTY ACIDS [Concomitant]
     Active Substance: OMEGA-3 FATTY ACIDS
     Dosage: 2000 MG, DAILY
     Route: 048
  21. PRINIVIL [Suspect]
     Active Substance: LISINOPRIL
     Indication: HYPERTENSION
     Dosage: 20 MG, DAILY
     Route: 048
     Dates: start: 20180502, end: 20210412
  22. ZOVIRAX [Concomitant]
     Active Substance: ACYCLOVIR
     Dosage: 800 MG, 2X/DAY
     Route: 048
  23. QUETIAPINE. [Concomitant]
     Active Substance: QUETIAPINE
     Indication: AGITATION
     Dosage: 1 TABLET PRIOR TO STEROIDS, ADDITIONAL 1 AS NEEDED FOR AGITATION. DO NOT EXCEED 3 TABLETS/DAY
     Route: 048

REACTIONS (3)
  - Syncope [Recovering/Resolving]
  - Febrile neutropenia [Not Recovered/Not Resolved]
  - Hypotension [Not Recovered/Not Resolved]

NARRATIVE: CASE EVENT DATE: 20210411
